FAERS Safety Report 25233899 (Version 3)
Quarter: 2025Q2

REPORT INFORMATION
  Report Type: Spontaneous
  Country: US (occurrence: US)
  Receive Date: 20250424
  Receipt Date: 20250522
  Transmission Date: 20250716
  Serious: Yes (Other)
  Sender: AMGEN
  Company Number: US-AMGEN-USASP2025077089

PATIENT
  Age: 58 Year
  Sex: Female
  Weight: 58 kg

DRUGS (40)
  1. TEPEZZA [Suspect]
     Active Substance: TEPROTUMUMAB-TRBW
     Indication: Endocrine ophthalmopathy
     Dosage: 610 MILLIGRAM, Q3WK, (FIRST INFUSION)
     Route: 040
     Dates: start: 20230522
  2. TEPEZZA [Suspect]
     Active Substance: TEPROTUMUMAB-TRBW
     Indication: Hyperthyroidism
     Dosage: 1220 MILLIGRAM, Q3WK, (UNKNOWN INFUSION)
     Route: 040
     Dates: start: 20230703
  3. TEPEZZA [Suspect]
     Active Substance: TEPROTUMUMAB-TRBW
     Dosage: 1220 MILLIGRAM, Q3WK, (UNKNOWN INFUSION)
     Route: 040
     Dates: start: 20230725
  4. TEPEZZA [Suspect]
     Active Substance: TEPROTUMUMAB-TRBW
     Dosage: 1220 MILLIGRAM, Q3WK, (UNKNOWN INFUSION)
     Route: 040
     Dates: start: 20230814
  5. TEPEZZA [Suspect]
     Active Substance: TEPROTUMUMAB-TRBW
     Dosage: 1220 MILLIGRAM, Q3WK, (UNKNOWN INFUSION)
     Route: 040
     Dates: start: 20230926
  6. TEPEZZA [Suspect]
     Active Substance: TEPROTUMUMAB-TRBW
     Dosage: 1220 MILLIGRAM, Q3WK, (UNKNOWN INFUSION)
     Route: 040
     Dates: start: 20231016
  7. TEPEZZA [Suspect]
     Active Substance: TEPROTUMUMAB-TRBW
     Dosage: 1220 MILLIGRAM, Q3WK, (UNKNOWN INFUSION)
     Route: 040
     Dates: start: 20231108
  8. TEPEZZA [Suspect]
     Active Substance: TEPROTUMUMAB-TRBW
     Dosage: 20 MILLIGRAM/KILOGRAM, Q3WK, (2 TO 8 INFUSION)
     Route: 040
     Dates: start: 20231108, end: 20231108
  9. VENLAFAXINE [Concomitant]
     Active Substance: VENLAFAXINE HYDROCHLORIDE
     Route: 065
  10. METOPROLOL [Concomitant]
     Active Substance: METOPROLOL
     Route: 065
  11. LYRICA [Concomitant]
     Active Substance: PREGABALIN
     Indication: Pain
     Dosage: 300 MILLIGRAM, BID
     Route: 048
     Dates: start: 20230313, end: 20230718
  12. METHIMAZOLE [Concomitant]
     Active Substance: METHIMAZOLE
     Route: 065
  13. ORASONE [Concomitant]
     Active Substance: PREDNISONE
  14. LOVENOX [Concomitant]
     Active Substance: ENOXAPARIN SODIUM
     Indication: Thrombosis
     Dosage: 0.8 MILLILITER, QD
     Route: 058
     Dates: start: 20230510, end: 20230613
  15. PRADAXA [Concomitant]
     Active Substance: DABIGATRAN ETEXILATE MESYLATE
     Dosage: 150 MILLIGRAM, Q12H
     Route: 048
     Dates: start: 20230510, end: 20230807
  16. DESYREL [Concomitant]
     Active Substance: TRAZODONE HYDROCHLORIDE
     Route: 048
     Dates: start: 20230313, end: 20240325
  17. LOPRESSOR [Concomitant]
     Active Substance: METOPROLOL TARTRATE
     Dosage: 50 MILLIGRAM, BID
     Route: 048
     Dates: start: 20230313, end: 20241104
  18. ULTRAM ER [Concomitant]
     Active Substance: TRAMADOL HYDROCHLORIDE
     Indication: Pain
     Dosage: 50 MILLIGRAM, QID
     Route: 048
     Dates: start: 20230313, end: 20230612
  19. ALBUTEROL [Concomitant]
     Active Substance: ALBUTEROL
     Indication: Chronic obstructive pulmonary disease
     Dates: start: 20230123, end: 20240425
  20. EFFEXOR [Concomitant]
     Active Substance: VENLAFAXINE HYDROCHLORIDE
     Dosage: 75 MILLIGRAM, TID
     Route: 048
     Dates: start: 20220927, end: 20230718
  21. TAPAZOLE [Concomitant]
     Active Substance: METHIMAZOLE
     Indication: Hyperthyroidism
     Route: 048
     Dates: start: 20220802, end: 20230809
  22. SANCTURA [Concomitant]
     Active Substance: TROSPIUM CHLORIDE
     Dosage: 20 MILLIGRAM, BID
     Route: 048
     Dates: start: 20220629, end: 20230811
  23. CENTANY [Concomitant]
     Active Substance: MUPIROCIN
     Dosage: UNK UNK, TID, (APPLY A THIN LAYER TO AFFECTED AREA(S)
     Route: 048
     Dates: start: 20220601, end: 20230601
  24. CAPSAICIN [Concomitant]
     Active Substance: CAPSAICIN
     Route: 065
     Dates: start: 20240208, end: 20240208
  25. CLARITIN [Concomitant]
     Active Substance: LORATADINE
     Dosage: 10 MILLIGRAM, QD
     Route: 048
  26. PROTOPIC [Concomitant]
     Active Substance: TACROLIMUS
     Dosage: UNK UNK, BID, APPLY A THIN LAYER TO AFFECTED AREA(S)
     Route: 065
     Dates: start: 20210311, end: 20240405
  27. ANECREAM 5 [Concomitant]
     Active Substance: LIDOCAINE
     Indication: Pain
     Route: 061
     Dates: start: 20181116, end: 20241107
  28. LIDODERM [Concomitant]
     Active Substance: LIDOCAINE
     Dosage: UNK UNK, Q12H
     Route: 061
     Dates: start: 20230514, end: 20241107
  29. SPIRIVA RESPIMAT [Concomitant]
     Active Substance: TIOTROPIUM BROMIDE
     Indication: Chronic obstructive pulmonary disease
     Dosage: UNK UNK, QD, (TWO PUFFS)
     Route: 048
     Dates: start: 20230526
  30. NORCO [Concomitant]
     Active Substance: ACETAMINOPHEN\HYDROCODONE BITARTRATE
     Indication: Pain
     Dosage: UNK UNK, Q6H
     Route: 048
     Dates: start: 20230526
  31. LAMICTAL [Concomitant]
     Active Substance: LAMOTRIGINE
     Dosage: 25 MILLIGRAM, QD
     Route: 048
     Dates: start: 20230517, end: 20230908
  32. HYDROCORTISONE [Concomitant]
     Active Substance: HYDROCORTISONE
     Dosage: UNK, APPLY A THIN LAYER TO AFFECTED AREA(
     Route: 061
     Dates: start: 20250127
  33. ZANAFLEX [Concomitant]
     Active Substance: TIZANIDINE HYDROCHLORIDE
     Route: 048
     Dates: start: 20250127
  34. XALATAN [Concomitant]
     Active Substance: LATANOPROST
     Dosage: UNK UNK, QD
     Route: 047
     Dates: start: 20241219
  35. Decara [Concomitant]
     Route: 048
  36. NALTREXONE HYDROCHLORIDE [Concomitant]
     Active Substance: NALTREXONE HYDROCHLORIDE
     Dosage: 1 MILLIGRAM PER MILLILITRE, QD
     Route: 048
  37. CELEBREX [Concomitant]
     Active Substance: CELECOXIB
     Dosage: 200 MILLIGRAM, BID
     Route: 048
     Dates: start: 20241003
  38. SODIUM CHLORIDE [Concomitant]
     Active Substance: SODIUM CHLORIDE
     Route: 040
  39. FLEXERIL [Concomitant]
     Active Substance: CYCLOBENZAPRINE HYDROCHLORIDE
     Indication: Muscle spasms
     Route: 048
     Dates: start: 20241014
  40. VARICELLA-ZOSTER VIRUS STRAIN OKA/MERCK LIVE ANTIGEN [Concomitant]
     Active Substance: VARICELLA-ZOSTER VIRUS STRAIN OKA/MERCK LIVE ANTIGEN
     Route: 065

REACTIONS (14)
  - Deafness neurosensory [Not Recovered/Not Resolved]
  - Neurogenic bladder [Unknown]
  - Injury [Unknown]
  - Physical disability [Unknown]
  - Pain [Unknown]
  - Anxiety [Unknown]
  - Emotional distress [Unknown]
  - Impaired quality of life [Unknown]
  - Product use complaint [Unknown]
  - Abdominal discomfort [Unknown]
  - Breast mass [Unknown]
  - Osteopenia [Unknown]
  - Head injury [Unknown]
  - Lumbar radiculopathy [Unknown]
